FAERS Safety Report 12741138 (Version 2)
Quarter: 2016Q4

REPORT INFORMATION
  Report Type: Report from Study
  Country: US (occurrence: US)
  Receive Date: 20160914
  Receipt Date: 20161013
  Transmission Date: 20170207
  Serious: No
  Sender: FDA-Public Use
  Company Number: PHEH2016US022553

PATIENT
  Sex: Female
  Weight: 53.5 kg

DRUGS (1)
  1. GILENYA [Suspect]
     Active Substance: FINGOLIMOD HYDROCHLORIDE
     Indication: MULTIPLE SCLEROSIS
     Dosage: 0.5 MG, QD
     Route: 048
     Dates: start: 20160825

REACTIONS (10)
  - Head discomfort [Unknown]
  - Pain in extremity [Unknown]
  - Adverse drug reaction [Unknown]
  - Feeling abnormal [Unknown]
  - Memory impairment [Unknown]
  - Cognitive disorder [Unknown]
  - Eye pain [Unknown]
  - Back pain [Unknown]
  - Balance disorder [Unknown]
  - Fall [Unknown]
